FAERS Safety Report 7219420-5 (Version None)
Quarter: 2011Q1

REPORT INFORMATION
  Report Type: 
  Country: None (occurrence: None)
  Receive Date: 20110103
  Receipt Date: 20101221
  Transmission Date: 20110831
  Serious: Yes (Other)
  Sender: FDA-Public Use
  Company Number: COM10-1745

PATIENT
  Age: 78 Year
  Sex: Female

DRUGS (3)
  1. PROPOXYPHENE NAPSYLATE AND ACETAMINOPHEN [Suspect]
     Indication: PAIN
     Dosage: PO TID PRN
     Route: 048
     Dates: start: 20100901
  2. PROPOXYPHENE NAPSYLATE AND ACETAMINOPHEN [Suspect]
     Indication: LUNG DISORDER
     Dosage: PO TID PRN
     Route: 048
     Dates: start: 20100901
  3. VENTOLIN [Concomitant]

REACTIONS (9)
  - RASH ERYTHEMATOUS [None]
  - MULTI-ORGAN DISORDER [None]
  - ASTHENIA [None]
  - OROPHARYNGEAL BLISTERING [None]
  - NECK PAIN [None]
  - BLISTER [None]
  - NAUSEA [None]
  - PNEUMONIA [None]
  - RESPIRATORY FAILURE [None]
